FAERS Safety Report 4487739-7 (Version None)
Quarter: 2004Q4

REPORT INFORMATION
  Report Type: 
  Country: None (occurrence: None)
  Receive Date: 20041028
  Receipt Date: 20041019
  Transmission Date: 20050328
  Serious: Yes (Death)
  Sender: FDA-Public Use
  Company Number: US-BRISTOL-MYERS SQUIBB COMPANY-12742672

PATIENT
  Age: 48 Year

DRUGS (1)
  1. MITOMYCIN-C BULK POWDER [Suspect]

REACTIONS (1)
  - MEDICATION ERROR [None]
